FAERS Safety Report 9393138 (Version 1)
Quarter: 2013Q3

REPORT INFORMATION
  Report Type: Spontaneous
  Country: DK (occurrence: FR)
  Receive Date: 20130710
  Receipt Date: 20130710
  Transmission Date: 20140515
  Serious: Yes (Life-Threatening, Hospitalization)
  Sender: FDA-Public Use
  Company Number: FR-FRI-1000046565

PATIENT
  Age: 38 Year
  Sex: Female

DRUGS (22)
  1. ESCITALOPRAM [Suspect]
     Dosage: 2 DF
     Route: 048
     Dates: start: 20130420, end: 20130426
  2. ALPRAZOLAM [Suspect]
     Dosage: 0.75 MG
     Route: 048
     Dates: start: 201304
  3. ALPRAZOLAM [Suspect]
     Dosage: 1.5 MG
     Route: 048
     Dates: start: 20130419
  4. ALPRAZOLAM [Suspect]
     Dosage: 1.5 MG
     Route: 048
     Dates: start: 20130420, end: 20130425
  5. ATARAX [Suspect]
     Dosage: 100 MG
     Route: 048
     Dates: start: 201304
  6. ATARAX [Suspect]
     Dosage: 300 MG
     Route: 048
     Dates: start: 20130419
  7. ATARAX [Suspect]
     Dosage: 400 MG
     Route: 048
     Dates: start: 20130421
  8. ATARAX [Suspect]
     Dosage: 200 DF
     Route: 048
     Dates: start: 20130422
  9. ATARAX [Suspect]
     Dosage: 300 MG
     Route: 048
     Dates: start: 20130426
  10. ATARAX [Suspect]
     Dosage: 250 MG
     Route: 048
     Dates: start: 20130427
  11. ATARAX [Suspect]
     Dosage: 200 MG
     Route: 048
     Dates: start: 20130428
  12. TERCIAN [Suspect]
     Dosage: 40 MG
     Route: 048
     Dates: start: 20130422
  13. TERCIAN [Suspect]
     Dosage: 80 DOSAGE FORM
     Route: 048
     Dates: start: 20130423, end: 20130426
  14. CIPROFLOXACINE [Suspect]
     Dosage: 3 DF
     Route: 042
     Dates: start: 20130415, end: 20130428
  15. BACTRIM FORTE [Concomitant]
     Dosage: 3 DF
     Dates: start: 20130419, end: 20130509
  16. FORTUM [Concomitant]
     Dosage: 6500 MICROGRAM
     Route: 042
     Dates: start: 20130421, end: 20130509
  17. PARACETAMOL [Concomitant]
     Route: 042
     Dates: start: 201304, end: 20130428
  18. DIFFU K [Concomitant]
  19. PAROXETINE [Concomitant]
     Dosage: 20 MG
  20. DAFALGAN [Concomitant]
     Indication: PAIN
  21. CONTRAMAL [Concomitant]
     Indication: PAIN
  22. SCOPODERM [Concomitant]
     Dosage: 1 MG / 72 HOURS

REACTIONS (1)
  - Hyperthermia [Recovered/Resolved]
